FAERS Safety Report 5549890-X (Version None)
Quarter: 2007Q4

REPORT INFORMATION
  Report Type: 
  Country: None (occurrence: None)
  Receive Date: 20071212
  Receipt Date: 20071210
  Transmission Date: 20080405
  Serious: Yes (Other)
  Sender: FDA-Public Use
  Company Number: US-BRISTOL-MYERS SQUIBB COMPANY-14002109

PATIENT
  Age: 60 Year
  Sex: Male

DRUGS (5)
  1. METHOTREXATE [Suspect]
     Indication: RHEUMATOID ARTHRITIS
  2. HYDROCHLOROTHIAZIDE [Suspect]
  3. AMLODIPINE [Suspect]
  4. CELECOXIB [Suspect]
  5. ESOMEPRAZOLE [Suspect]

REACTIONS (1)
  - PERICARDITIS [None]
